FAERS Safety Report 5822937-9 (Version None)
Quarter: 2008Q3

REPORT INFORMATION
  Report Type: 
  Country: None (occurrence: None)
  Receive Date: 20080724
  Receipt Date: 20080724
  Transmission Date: 20090109
  Serious: Yes (Life-Threatening, Hospitalization, Other)
  Sender: FDA-Public Use
  Company Number: None

PATIENT
  Age: 81 Year
  Sex: Female
  Weight: 79.3795 kg

DRUGS (2)
  1. LEVAQUIN [Suspect]
     Indication: INFECTION
     Dosage: 500 MG DAILY 15 DAYS
     Dates: start: 20080110, end: 20080125
  2. VERAPAMIL [Suspect]
     Indication: HYPERTENSION
     Dosage: 25 MG. DAILY
     Dates: start: 19950101, end: 20080203

REACTIONS (3)
  - FALL [None]
  - HEART RATE DECREASED [None]
  - TENDON DISORDER [None]
